FAERS Safety Report 21831370 (Version 2)
Quarter: 2023Q1

REPORT INFORMATION
  Report Type: Spontaneous
  Country: US (occurrence: US)
  Receive Date: 20230106
  Receipt Date: 20230303
  Transmission Date: 20230418
  Serious: Yes (Other)
  Sender: FDA-Public Use
  Company Number: US-ALXN-A202300099

PATIENT
  Age: 36 Year
  Sex: Female

DRUGS (6)
  1. SOLIRIS [Suspect]
     Active Substance: ECULIZUMAB
     Indication: Pancreatitis
     Dosage: UNK
     Route: 065
  2. SOLIRIS [Suspect]
     Active Substance: ECULIZUMAB
     Indication: Acute kidney injury
  3. SOLIRIS [Suspect]
     Active Substance: ECULIZUMAB
     Indication: Off label use
  4. PREDNISONE [Concomitant]
     Active Substance: PREDNISONE
     Indication: Acute kidney injury
     Dosage: 40 MG, QD
     Route: 048
  5. PREDNISONE [Concomitant]
     Active Substance: PREDNISONE
     Dosage: 5 MG, QD
     Route: 048
  6. PREDNISONE [Concomitant]
     Active Substance: PREDNISONE
     Indication: Pancreatitis
     Dosage: 60 MG, QD
     Route: 048

REACTIONS (6)
  - Pancreatitis [Unknown]
  - Acute kidney injury [Unknown]
  - Disease recurrence [Unknown]
  - Off label use [Unknown]
  - Nausea [Unknown]
  - Headache [Unknown]
